FAERS Safety Report 11238952 (Version 1)
Quarter: 2015Q3

REPORT INFORMATION
  Report Type: Spontaneous
  Country: US (occurrence: US)
  Receive Date: 20150706
  Receipt Date: 20150706
  Transmission Date: 20151125
  Serious: Yes (Other)
  Sender: FDA-Public Use
  Company Number: US-DRREDDYS-USA/USA/15/0049093

PATIENT
  Sex: Female
  Weight: 56.69 kg

DRUGS (1)
  1. HABITROL [Suspect]
     Active Substance: NICOTINE
     Indication: SMOKING CESSATION THERAPY
     Route: 062

REACTIONS (4)
  - Treatment noncompliance [Unknown]
  - Product quality issue [Unknown]
  - Hypertension [Not Recovered/Not Resolved]
  - Eye haemorrhage [Unknown]
